FAERS Safety Report 4493970-7 (Version None)
Quarter: 2004Q4

REPORT INFORMATION
  Report Type: 
  Country: None (occurrence: None)
  Receive Date: 20041102
  Receipt Date: 20041018
  Transmission Date: 20050328
  Serious: No
  Sender: FDA-Public Use
  Company Number: USA041081365

PATIENT
  Age: 55 Year
  Sex: Male

DRUGS (4)
  1. CYBALTA      (DULOXETINE HYDROCHLORIDE) [Suspect]
     Indication: MAJOR DEPRESSION
     Dosage: 60 MG/1 DAY
     Dates: start: 20041001, end: 20041015
  2. HYDROCHLOROTHIAZIDE W/LOSARTAN [Concomitant]
  3. MULTIVITAMINS NOS (MULVITAMINS NOS ) [Concomitant]
  4. SELENIUM TRACE METAL ADDITIVE [Concomitant]

REACTIONS (3)
  - ALANINE AMINOTRANSFERASE INCREASED [None]
  - ASPARTATE AMINOTRANSFERASE INCREASED [None]
  - HEPATIC ENZYME INCREASED [None]
